FAERS Safety Report 8924810 (Version 2)
Quarter: 2012Q4

REPORT INFORMATION
  Report Type: 
  Country: BR (occurrence: BR)
  Receive Date: 20121126
  Receipt Date: 20121204
  Transmission Date: 20130627
  Serious: Yes (Other)
  Sender: FDA-Public Use
  Company Number: BR-PFIZER INC-2012293831

PATIENT
  Age: 51 Year
  Sex: Female

DRUGS (5)
  1. SUTENT [Suspect]
     Indication: RENAL CELL CARCINOMA
     Dosage: 50 mg unspecified frequency, cycle 4/2
     Route: 048
     Dates: start: 20121108
  2. RIVOTRIL [Concomitant]
  3. DEPAKENE [Concomitant]
  4. BUPROPION [Concomitant]
  5. CLARITIN-D [Concomitant]

REACTIONS (11)
  - Feeding disorder [Unknown]
  - Sinusitis [Unknown]
  - Fatigue [Unknown]
  - Rash macular [Unknown]
  - Nausea [Unknown]
  - Mouth injury [Unknown]
  - Blister [Not Recovered/Not Resolved]
  - Skin exfoliation [Not Recovered/Not Resolved]
  - Vomiting [Unknown]
  - Burn oesophageal [Not Recovered/Not Resolved]
  - Oropharyngeal pain [Not Recovered/Not Resolved]
